FAERS Safety Report 7386991-8 (Version None)
Quarter: 2011Q1

REPORT INFORMATION
  Report Type: 
  Country: None (occurrence: None)
  Receive Date: 20110322
  Receipt Date: 20110315
  Transmission Date: 20110831
  Serious: Yes (Hospitalization)
  Sender: FDA-Public Use
  Company Number: 861480

PATIENT
  Age: 47 Year
  Sex: Male

DRUGS (4)
  1. (CETUXIMAB) [Concomitant]
  2. OXALIPLATIN [Suspect]
     Indication: COLON CANCER METASTATIC
  3. (FOLINIC ACID) [Concomitant]
  4. FLUOROURACIL [Concomitant]

REACTIONS (8)
  - RENAL FAILURE ACUTE [None]
  - RENAL TUBULAR NECROSIS [None]
  - ABDOMINAL PAIN [None]
  - INTRAVASCULAR HAEMOLYSIS [None]
  - HAEMOGLOBIN DECREASED [None]
  - CHILLS [None]
  - PYREXIA [None]
  - HAEMODIALYSIS [None]
